FAERS Safety Report 9373608 (Version 2)
Quarter: 2013Q3

REPORT INFORMATION
  Report Type: Spontaneous
  Country: US (occurrence: US)
  Receive Date: 20130627
  Receipt Date: 20130828
  Transmission Date: 20140515
  Serious: Yes (Other)
  Sender: FDA-Public Use
  Company Number: US-ALLERGAN-1309292US

PATIENT
  Age: 24 Year
  Sex: Female

DRUGS (1)
  1. BOTOX COSMETIC [Suspect]
     Indication: SKIN WRINKLING
     Dosage: 25 UNITS, SINGLE
     Route: 030
     Dates: start: 20130618, end: 20130618

REACTIONS (4)
  - Pharyngeal oedema [Unknown]
  - Dyspnoea [Unknown]
  - Wrong technique in drug usage process [Unknown]
  - Off label use [Unknown]
